FAERS Safety Report 7351979-X (Version None)
Quarter: 2011Q1

REPORT INFORMATION
  Report Type: 
  Country: None (occurrence: None)
  Receive Date: 20110310
  Receipt Date: 20110310
  Transmission Date: 20110831
  Serious: Yes (Life-Threatening, Hospitalization)
  Sender: FDA-Public Use
  Company Number: None

PATIENT
  Age: 53 Year
  Sex: Female
  Weight: 63.5036 kg

DRUGS (2)
  1. LEVAQUIN [Suspect]
     Indication: PNEUMONIA
     Dosage: 1 TABLET EVERY DAY UNTIL FINISHED MOUTH
     Route: 048
     Dates: start: 20110208
  2. LEVAQUIN [Suspect]
     Indication: PNEUMONIA
     Dosage: 1 TABLET EVERY DAY UNTIL FINISHED MOUTH
     Route: 048
     Dates: start: 20110207

REACTIONS (6)
  - BLOOD PRESSURE DECREASED [None]
  - WHITE BLOOD CELL COUNT DECREASED [None]
  - FALL [None]
  - DIZZINESS [None]
  - DEHYDRATION [None]
  - DRUG HYPERSENSITIVITY [None]
